FAERS Safety Report 4866265-7 (Version None)
Quarter: 2005Q4

REPORT INFORMATION
  Report Type: 
  Country: None (occurrence: None)
  Receive Date: 20051221
  Receipt Date: 20051208
  Transmission Date: 20060501
  Serious: Yes (Other)
  Sender: FDA-Public Use
  Company Number: 2005S1000440

PATIENT
  Sex: Female

DRUGS (2)
  1. SORIATANE [Suspect]
     Indication: DRUG USE FOR UNKNOWN INDICATION
     Dosage: VAG
     Route: 067
     Dates: start: 20040801, end: 20040101
  2. ZANTAC [Concomitant]

REACTIONS (8)
  - ABORTION SPONTANEOUS [None]
  - AMNIOCENTESIS ABNORMAL [None]
  - DRUG EXPOSURE DURING PREGNANCY [None]
  - PLACENTA PRAEVIA [None]
  - PREGNANCY OF PARTNER [None]
  - PREMATURE SEPARATION OF PLACENTA [None]
  - STILLBIRTH [None]
  - TRANSMISSION OF DRUG VIA SEMEN [None]
